FAERS Safety Report 23730760 (Version 1)
Quarter: 2024Q2

REPORT INFORMATION
  Report Type: Spontaneous
  Country: US (occurrence: US)
  Receive Date: 20240411
  Receipt Date: 20240411
  Transmission Date: 20240715
  Serious: Yes (Other)
  Sender: FDA-Public Use
  Company Number: HIKM2401986

PATIENT

DRUGS (1)
  1. PREDNISONE [Suspect]
     Active Substance: PREDNISONE
     Indication: Product used for unknown indication
     Dosage: UNK;DAY 4 OF 14
     Route: 065

REACTIONS (9)
  - Weight bearing difficulty [Unknown]
  - Headache [Unknown]
  - Vomiting [Unknown]
  - Blood urine present [Unknown]
  - Brain fog [Unknown]
  - Renal impairment [Unknown]
  - Proteinuria [Unknown]
  - Inflammation [Unknown]
  - Anaemia [Unknown]
